FAERS Safety Report 12601452 (Version 1)
Quarter: 2016Q3

REPORT INFORMATION
  Report Type: Spontaneous
  Country: US (occurrence: US)
  Receive Date: 20160728
  Receipt Date: 20160728
  Transmission Date: 20161109
  Serious: Yes (Other)
  Sender: FDA-Public Use
  Company Number: US-ROCHE-1803372

PATIENT
  Age: 51 Year
  Sex: Female

DRUGS (1)
  1. RITUXAN [Suspect]
     Active Substance: RITUXIMAB
     Indication: MICROSCOPIC POLYANGIITIS
     Route: 042

REACTIONS (5)
  - Dyspnoea [Unknown]
  - Rash [Unknown]
  - Swollen tongue [Unknown]
  - Sensation of foreign body [Unknown]
  - Oral pruritus [Unknown]
